FAERS Safety Report 19954802 (Version 1)
Quarter: 2021Q4

REPORT INFORMATION
  Report Type: Spontaneous
  Country: IN (occurrence: IN)
  Receive Date: 20211014
  Receipt Date: 20211014
  Transmission Date: 20220303
  Serious: Yes (Hospitalization, Other)
  Sender: FDA-Public Use
  Company Number: IN-CPL-002602

PATIENT
  Age: 24 Year
  Sex: Male

DRUGS (5)
  1. OFLOXACIN [Suspect]
     Active Substance: OFLOXACIN
     Indication: Product used for unknown indication
     Dosage: 200 MG TWICE A DAY
     Route: 048
  2. DICYCLOMINE [Concomitant]
     Active Substance: DICYCLOMINE HYDROCHLORIDE
     Indication: Symptomatic treatment
     Dosage: EVERY 8H
     Route: 042
  3. ACETAMINOPHEN [Concomitant]
     Active Substance: ACETAMINOPHEN
     Indication: Pyrexia
  4. DEXTROSE [Concomitant]
     Active Substance: DEXTROSE
  5. SODIUM CHLORIDE [Concomitant]
     Active Substance: SODIUM CHLORIDE

REACTIONS (3)
  - Intravascular haemolysis [Recovered/Resolved]
  - Pigment nephropathy [Recovered/Resolved]
  - Renal tubular injury [Recovered/Resolved]
